FAERS Safety Report 13914664 (Version 1)
Quarter: 2017Q3

REPORT INFORMATION
  Report Type: Report from Study
  Country: CA (occurrence: CA)
  Receive Date: 20170828
  Receipt Date: 20170828
  Transmission Date: 20171127
  Serious: Yes (Other)
  Sender: FDA-Public Use
  Company Number: CA-GILEAD-2017-0290541

PATIENT
  Age: 60 Year
  Sex: Male

DRUGS (7)
  1. ELIQUIS [Concomitant]
     Active Substance: APIXABAN
  2. HUMALOG [Concomitant]
     Active Substance: INSULIN LISPRO
  3. EFFEXOR [Concomitant]
     Active Substance: VENLAFAXINE HYDROCHLORIDE
  4. LANTUS [Concomitant]
     Active Substance: INSULIN GLARGINE
  5. LYRICA [Concomitant]
     Active Substance: PREGABALIN
  6. SOFOSBUVIR W/VELPATASVIR [Suspect]
     Active Substance: SOFOSBUVIR\VELPATASVIR
     Indication: CHRONIC HEPATITIS C
     Dosage: 600 MG, UNK
     Route: 048
  7. IBAVYR [Suspect]
     Active Substance: RIBAVIRIN
     Indication: CHRONIC HEPATITIS C
     Dosage: 1000 MG, UNK
     Route: 048

REACTIONS (2)
  - Cough [Not Recovered/Not Resolved]
  - Nasopharyngitis [Not Recovered/Not Resolved]
